FAERS Safety Report 5323866-X (Version None)
Quarter: 2007Q2

REPORT INFORMATION
  Report Type: 
  Country: None (occurrence: None)
  Receive Date: 20070509
  Receipt Date: 20070509
  Transmission Date: 20071010
  Serious: No
  Sender: FDA-Public Use
  Company Number: None

PATIENT
  Age: 34 Year
  Sex: Female
  Weight: 72.5755 kg

DRUGS (1)
  1. ZICAM COLD REMEDY MATRIXX INITIATIVES, INC. [Suspect]
     Indication: NASOPHARYNGITIS
     Dosage: 1 TABLET EVERY 3 HOURS PO
     Route: 048
     Dates: start: 20070201, end: 20070214

REACTIONS (1)
  - ANOSMIA [None]
